FAERS Safety Report 19934061 (Version 1)
Quarter: 2021Q4

REPORT INFORMATION
  Report Type: Spontaneous
  Country: PT (occurrence: PT)
  Receive Date: 20211008
  Receipt Date: 20211008
  Transmission Date: 20220304
  Serious: Yes (Hospitalization, Other)
  Sender: FDA-Public Use
  Company Number: PT-PFIZER INC-2021627758

PATIENT
  Age: 65 Year
  Sex: Male

DRUGS (5)
  1. VORICONAZOLE [Suspect]
     Active Substance: VORICONAZOLE
     Indication: Fusarium infection
     Dosage: 800 MILLIGRAM, QD(400 MG, TWICE DAILY (LOADING DOSE))
     Route: 048
  2. VORICONAZOLE [Suspect]
     Active Substance: VORICONAZOLE
     Dosage: 400 MILLIGRAM, QD, (200 MG, TWICE DAILY (MAINTENANCE DOSE))
     Route: 048
  3. OCTENIDINE\PHENOXYETHANOL [Suspect]
     Active Substance: OCTENIDINE\PHENOXYETHANOL
     Indication: Fusarium infection
     Dosage: UNK (GEL)
     Route: 061
  4. COLLAGENASE CLOSTRIDIUM HISTOLYTICUM [Suspect]
     Active Substance: COLLAGENASE CLOSTRIDIUM HISTOLYTICUM
     Indication: Fusarium infection
     Dosage: UNK (GEL)
     Route: 061
  5. PREDNISOLONE [Concomitant]
     Active Substance: PREDNISOLONE
     Indication: Proctitis ulcerative
     Dosage: UNK
     Route: 065

REACTIONS (1)
  - Drug ineffective [Unknown]
